FAERS Safety Report 7992260-5 (Version None)
Quarter: 2011Q4

REPORT INFORMATION
  Report Type: 
  Country: None (occurrence: None)
  Receive Date: 20111219
  Receipt Date: 20110209
  Transmission Date: 20120403
  Serious: No
  Sender: FDA-Public Use
  Company Number: US-ASTRAZENECA-2011SE07892

PATIENT
  Age: 70 Year
  Sex: Male

DRUGS (4)
  1. FISH OIL [Concomitant]
  2. CRESTOR [Suspect]
     Indication: HYPERCHOLESTEROLAEMIA
     Route: 048
     Dates: start: 20060101
  3. LIPITOR [Concomitant]
  4. VITAMIN D [Concomitant]

REACTIONS (3)
  - COUGH [None]
  - DRY THROAT [None]
  - DYSPHONIA [None]
